FAERS Safety Report 14303455 (Version 1)
Quarter: 2017Q4

REPORT INFORMATION
  Report Type: Spontaneous
  Country: SE (occurrence: SE)
  Receive Date: 20171219
  Receipt Date: 20171219
  Transmission Date: 20180321
  Serious: Yes (Other)
  Sender: FDA-Public Use
  Company Number: SE-OTSUKA-2017_013149

PATIENT
  Age: 38 Year
  Sex: Female

DRUGS (1)
  1. ABILIFY [Suspect]
     Active Substance: ARIPIPRAZOLE
     Indication: SCHIZOPHRENIA
     Dosage: UNK
     Route: 065
     Dates: end: 20150901

REACTIONS (6)
  - Weight increased [Unknown]
  - Depression [Unknown]
  - Hyperhidrosis [Unknown]
  - Multiple sclerosis [Unknown]
  - Communication disorder [Unknown]
  - Product communication issue [Unknown]

NARRATIVE: CASE EVENT DATE: 201412
